FAERS Safety Report 6998339-9 (Version None)
Quarter: 2010Q3

REPORT INFORMATION
  Report Type: 
  Country: None (occurrence: None)
  Receive Date: 20100920
  Receipt Date: 20100907
  Transmission Date: 20110219
  Serious: Yes (Other)
  Sender: FDA-Public Use
  Company Number: JP-JNJFOC-20100705363

PATIENT
  Sex: Female
  Weight: 51 kg

DRUGS (3)
  1. REMICADE [Suspect]
     Indication: RHEUMATOID ARTHRITIS
     Route: 042
  2. REMICADE [Suspect]
     Route: 042
  3. REMICADE [Suspect]
     Dosage: DOSE UNSPECIFIED
     Route: 042

REACTIONS (4)
  - BLOOD PRESSURE DECREASED [None]
  - INFUSION RELATED REACTION [None]
  - PRURITUS [None]
  - TACHYCARDIA [None]
